FAERS Safety Report 8978499 (Version 2)
Quarter: 2014Q3

REPORT INFORMATION
  Report Type: Report from Study
  Country: US (occurrence: US)
  Receive Date: 20121221
  Receipt Date: 20140818
  Transmission Date: 20150326
  Serious: Yes (Hospitalization)
  Sender: FDA-Public Use
  Company Number: US-BIOGENIDEC-2012BI062027

PATIENT
  Age: 55 Year
  Sex: Female

DRUGS (1)
  1. AVONEX [Suspect]
     Active Substance: INTERFERON BETA-1A
     Indication: MULTIPLE SCLEROSIS
     Route: 030
     Dates: start: 20110128

REACTIONS (13)
  - Sleep apnoea syndrome [Unknown]
  - Insomnia [Recovered/Resolved with Sequelae]
  - Malaise [Unknown]
  - Influenza [Not Recovered/Not Resolved]
  - Respiratory arrest [Recovered/Resolved with Sequelae]
  - Fall [Recovered/Resolved]
  - Headache [Not Recovered/Not Resolved]
  - Muscle spasms [Unknown]
  - Dizziness postural [Recovered/Resolved with Sequelae]
  - Pain in extremity [Recovered/Resolved with Sequelae]
  - Loss of control of legs [Recovered/Resolved with Sequelae]
  - Multiple sclerosis [Unknown]
  - Liver function test abnormal [Recovered/Resolved]

NARRATIVE: CASE EVENT DATE: 20110128
